FAERS Safety Report 7498580-5 (Version None)
Quarter: 2011Q2

REPORT INFORMATION
  Report Type: 
  Country: None (occurrence: None)
  Receive Date: 20110524
  Receipt Date: 20101213
  Transmission Date: 20111010
  Serious: Yes (Hospitalization, Other)
  Sender: FDA-Public Use
  Company Number: US-BAYER-201035952NA

PATIENT
  Age: 23 Year
  Sex: Female
  Weight: 77.098 kg

DRUGS (7)
  1. YASMIN [Suspect]
     Indication: MENSTRUAL DISORDER
     Route: 048
     Dates: start: 20020128, end: 20080901
  2. PAMINE [Concomitant]
     Indication: GASTROOESOPHAGEAL REFLUX DISEASE
     Dosage: UNK
     Dates: start: 20021001
  3. BENTYL [Concomitant]
     Indication: IRRITABLE BOWEL SYNDROME
     Dosage: UNK
     Dates: start: 20080901
  4. IBUPROFEN [Concomitant]
     Dosage: UNK UNK, PRN
  5. ACIPHEX [Concomitant]
     Indication: GASTROOESOPHAGEAL REFLUX DISEASE
     Dosage: UNK
     Dates: start: 20080901, end: 20081001
  6. LORAZEPAM [Concomitant]
     Indication: ANXIETY
     Dosage: UNK
     Dates: start: 20021001
  7. HYDROCODONE [HYDROCODONE] [Concomitant]
     Indication: PAIN
     Dosage: UNK
     Dates: start: 20050701

REACTIONS (3)
  - BILIARY DYSKINESIA [None]
  - ABDOMINAL DISCOMFORT [None]
  - CHOLECYSTITIS CHRONIC [None]
